FAERS Safety Report 4405213-0 (Version None)
Quarter: 2004Q3

REPORT INFORMATION
  Report Type: 
  Country: None (occurrence: None)
  Receive Date: 20040722
  Receipt Date: 20040722
  Transmission Date: 20050211
  Serious: Yes (Hospitalization, Other)
  Sender: FDA-Public Use
  Company Number: None

PATIENT
  Age: 52 Year
  Sex: Male
  Weight: 64.7 kg

DRUGS (5)
  1. RIFAMPIN [Suspect]
     Indication: STAPHYLOCOCCAL INFECTION
     Dosage: 600 MG PO DAILY
     Route: 048
     Dates: start: 20040429
  2. BACTRIM DS [Suspect]
     Dosage: ONE DAILY X 14 DAYS
  3. SINEMET [Concomitant]
  4. TOPICAL STEROIDS [Concomitant]
  5. M.V.I. [Concomitant]

REACTIONS (6)
  - NAUSEA [None]
  - PANCREATITIS [None]
  - PYREXIA [None]
  - RASH [None]
  - RENAL FAILURE [None]
  - VOMITING [None]
